FAERS Safety Report 9222303 (Version 1)
Quarter: 2013Q2

REPORT INFORMATION
  Report Type: Report from Study
  Country: AU (occurrence: AU)
  Receive Date: 20130410
  Receipt Date: 20130410
  Transmission Date: 20140414
  Serious: Yes (Other)
  Sender: FDA-Public Use
  Company Number: AU-JNJFOC-20130314927

PATIENT
  Sex: Female

DRUGS (11)
  1. RIVAROXABAN [Suspect]
     Indication: CEREBROVASCULAR ACCIDENT PROPHYLAXIS
     Route: 048
     Dates: start: 20121128
  2. RIVAROXABAN [Suspect]
     Indication: ATRIAL FIBRILLATION
     Route: 048
     Dates: start: 20121128
  3. AMIODARONE [Concomitant]
  4. CLOPIDOGREL [Concomitant]
  5. COLOFAC [Concomitant]
  6. GLYCERYL TRINITRATE [Concomitant]
  7. KARVEA [Concomitant]
  8. NEXIUM [Concomitant]
  9. THYROXINE [Concomitant]
  10. VYTORIN [Concomitant]
  11. ZANIDIP [Concomitant]

REACTIONS (1)
  - Renal impairment [Unknown]
